FAERS Safety Report 5601026-2 (Version None)
Quarter: 2008Q1

REPORT INFORMATION
  Report Type: 
  Country: None (occurrence: None)
  Receive Date: 20080124
  Receipt Date: 20080121
  Transmission Date: 20080703
  Serious: Yes (Death)
  Sender: FDA-Public Use
  Company Number: SE-ELI_LILLY_AND_COMPANY-SE200801004164

PATIENT
  Age: 55 Year
  Sex: Male

DRUGS (1)
  1. OLANZAPINE [Suspect]

REACTIONS (1)
  - DEATH [None]
